FAERS Safety Report 22532523 (Version 1)
Quarter: 2023Q2

REPORT INFORMATION
  Report Type: Other
  Country: CH (occurrence: None)
  Receive Date: 20230607
  Receipt Date: 20230607
  Transmission Date: 20230722
  Serious: Yes (Other)
  Sender: FDA-Public Use
  Company Number: CH-ROCHE-3361761

PATIENT
  Age: 35 Year

DRUGS (10)
  1. MYCOPHENOLATE MOFETIL [Suspect]
     Active Substance: MYCOPHENOLATE MOFETIL
     Indication: Chronic graft versus host disease
     Route: 065
  2. TOCILIZUMAB [Suspect]
     Active Substance: TOCILIZUMAB
     Indication: Chronic graft versus host disease
     Route: 065
  3. TACROLIMUS [Suspect]
     Active Substance: TACROLIMUS
     Indication: Chronic graft versus host disease
     Route: 065
  4. CYCLOSPORINE [Suspect]
     Active Substance: CYCLOSPORINE
     Indication: Chronic graft versus host disease
     Route: 065
  5. IBRUTINIB [Suspect]
     Active Substance: IBRUTINIB
     Indication: Chronic graft versus host disease
     Route: 065
  6. ETANERCEPT [Suspect]
     Active Substance: ETANERCEPT
     Indication: Chronic graft versus host disease
     Route: 065
  7. RUXOLITINIB [Suspect]
     Active Substance: RUXOLITINIB
     Indication: Chronic graft versus host disease
     Route: 065
  8. ETOPOSIDE [Suspect]
     Active Substance: ETOPOSIDE
     Indication: Bone marrow conditioning regimen
     Route: 065
  9. VALACYCLOVIR [Concomitant]
     Active Substance: VALACYCLOVIR HYDROCHLORIDE
     Dosage: FIRST STARTED AS PRIMARY PROPHYLAXIS AND ON PTD 199 WAS RESTARTED AS SECONDARY PROPHYLAXIS
     Route: 048
  10. VALACYCLOVIR [Concomitant]
     Active Substance: VALACYCLOVIR HYDROCHLORIDE
     Dosage: FOR FIRST HSV EPISODE
     Route: 048

REACTIONS (1)
  - Herpes simplex [Recovered/Resolved]
